FAERS Safety Report 10510106 (Version 1)
Quarter: 2014Q4

REPORT INFORMATION
  Report Type: Spontaneous
  Country: US (occurrence: None)
  Receive Date: 20141008
  Receipt Date: 20141008
  Transmission Date: 20150528
  Serious: Yes (Other)
  Sender: FDA-Public Use
  Company Number: IPC201409-000507

PATIENT
  Age: 42 Year
  Sex: Female

DRUGS (11)
  1. LISINOPRIL (LISINOPRIL) (LISINOPRIL) [Suspect]
     Active Substance: LISINOPRIL
     Indication: HYPERTENSION
  2. ASPIRIN (ACETYLSALICYLIC  ACID) (ACETYLSALICYLIC  ACID) [Suspect]
     Active Substance: ASPIRIN
  3. ATENOLOL (ATENOLOL) (ATENOLOL) [Suspect]
     Active Substance: ATENOLOL
  4. HYDROCHLOROTHIAZIDE (HYDROCHLOROTHIAZIDE) (HYDROCHLOROTHIAZIDE) [Suspect]
     Active Substance: HYDROCHLOROTHIAZIDE
  5. DOCUSATE SODIUM. [Suspect]
     Active Substance: DOCUSATE SODIUM
  6. POLYETHYLENE GYLCOL [Suspect]
     Active Substance: POLYETHYLENE GLYCOLS
  7. DIPHENHYDRAMINE (DIPHENHYDRAMINE) (DIPHENHYDRAMINE) [Suspect]
     Active Substance: DIPHENHYDRAMINE
     Indication: INSOMNIA
  8. OXYCODONE (OXYCODONE) (OXYCODONE) [Suspect]
     Active Substance: OXYCODONE
  9. NIFEDIPINE (NIFEDIPINE) (NIFEDIPINE) [Suspect]
     Active Substance: NIFEDIPINE
  10. AMITRIPTYLINE (AMITRIPTYLINE) (AMITRIPTYLINE) [Suspect]
     Active Substance: AMITRIPTYLINE
  11. DIAZEPAM (DIAZEPAM) (DIAZEPAM) [Suspect]
     Active Substance: DIAZEPAM

REACTIONS (6)
  - Ascites [None]
  - Lymphadenopathy [None]
  - Vomiting [None]
  - Angioedema [None]
  - Abdominal pain [None]
  - Nausea [None]
